FAERS Safety Report 11215429 (Version 1)
Quarter: 2015Q2

REPORT INFORMATION
  Report Type: Spontaneous
  Country: US (occurrence: US)
  Receive Date: 20150624
  Receipt Date: 20150624
  Transmission Date: 20150821
  Serious: No
  Sender: FDA-Public Use
  Company Number: US-ELI_LILLY_AND_COMPANY-US201506003557

PATIENT
  Age: 67 Year
  Sex: Female

DRUGS (2)
  1. HUMALOG [Suspect]
     Active Substance: INSULIN LISPRO
     Dosage: 30 DF, EACH EVENING
     Route: 065
     Dates: start: 201311
  2. HUMALOG [Suspect]
     Active Substance: INSULIN LISPRO
     Indication: TYPE 2 DIABETES MELLITUS
     Dosage: 35 DF, EACH MORNING
     Route: 065
     Dates: start: 201311

REACTIONS (5)
  - Tenosynovitis stenosans [Unknown]
  - Arthritis [Unknown]
  - Visual acuity reduced [Unknown]
  - Joint swelling [Unknown]
  - Peripheral swelling [Unknown]
